FAERS Safety Report 4354937-2 (Version None)
Quarter: 2004Q2

REPORT INFORMATION
  Report Type: 
  Country: None (occurrence: None)
  Receive Date: 20040510
  Receipt Date: 20040429
  Transmission Date: 20050107
  Serious: Yes (Hospitalization)
  Sender: FDA-Public Use
  Company Number: PHBS2004BE05990

PATIENT
  Age: 57 Year
  Sex: Female

DRUGS (2)
  1. DIOVAN [Suspect]
     Indication: HYPERTENSION
     Dosage: 80 MG/D
     Route: 048
     Dates: start: 20020101, end: 20031201
  2. DIOVAN [Suspect]
     Dosage: 80 MG/D
     Route: 048
     Dates: start: 20040401, end: 20040401

REACTIONS (5)
  - BLOOD CREATININE INCREASED [None]
  - GASTRIC HAEMORRHAGE [None]
  - HYPOTENSION [None]
  - HYPOVOLAEMIA [None]
  - RENAL FAILURE [None]
